FAERS Safety Report 17833403 (Version 1)
Quarter: 2020Q2

REPORT INFORMATION
  Report Type: Spontaneous
  Country: NL (occurrence: NL)
  Receive Date: 20200528
  Receipt Date: 20200528
  Transmission Date: 20200714
  Serious: Yes (Other)
  Sender: FDA-Public Use
  Company Number: ALC2020NL003931

PATIENT

DRUGS (1)
  1. FLUORESCEIN SODIUM. [Suspect]
     Active Substance: FLUORESCEIN SODIUM
     Indication: ANGIOGRAM
     Dosage: 5 ML OF 10 PERCENT
     Route: 042

REACTIONS (3)
  - Malaise [Unknown]
  - Loss of consciousness [Recovered/Resolved]
  - Anaphylactic reaction [Recovering/Resolving]
